FAERS Safety Report 8734364 (Version 2)
Quarter: 2012Q4

REPORT INFORMATION
  Report Type: Spontaneous
  Country: JP (occurrence: None)
  Receive Date: 20120801
  Receipt Date: 20120820
  Transmission Date: 20130627
  Serious: Yes (Death)
  Sender: FDA-Public Use
  Company Number: ENT 2012-0106

PATIENT
  Age: 78 Year
  Sex: Female

DRUGS (1)
  1. COMTAN [Suspect]
     Indication: PARKINSON^S DISEASE
     Dosage: 100 MG DAILY ORAL
     Route: 048
     Dates: start: 201203

REACTIONS (1)
  - DEATH [None]
